FAERS Safety Report 8606684-6 (Version None)
Quarter: 2012Q3

REPORT INFORMATION
  Report Type: 
  Country: None (occurrence: None)
  Receive Date: 20120820
  Receipt Date: 20120807
  Transmission Date: 20120928
  Serious: Yes (Hospitalization)
  Sender: FDA-Public Use
  Company Number: ZA-ELI_LILLY_AND_COMPANY-ZA201208004193

PATIENT
  Sex: Male

DRUGS (4)
  1. VALSARTAN [Concomitant]
     Dosage: 1 DF, EACH MORNING
  2. ATORVASTATIN CALCIUM [Concomitant]
     Dosage: 1 DF, EACH EVENING
  3. HUMALOG MIX 50/50 [Suspect]
     Indication: DIABETES MELLITUS
     Dosage: 10 U, BID
     Route: 058
     Dates: start: 20110531
  4. ASPIRIN [Concomitant]
     Dosage: 1 DF, EACH MORNING

REACTIONS (1)
  - PNEUMONIA [None]
